FAERS Safety Report 8976589 (Version 1)
Quarter: 2012Q4

REPORT INFORMATION
  Report Type: 
  Country: US (occurrence: US)
  Receive Date: 20121220
  Receipt Date: 20121220
  Transmission Date: 20130627
  Serious: Yes (Other)
  Sender: FDA-Public Use
  Company Number: CHPA2012US025225

PATIENT
  Age: 66 Year
  Sex: Female

DRUGS (1)
  1. MYOFLEX ANALGESIC CREME [Suspect]
     Indication: PAIN
     Dosage: UNK, UNK
     Route: 061

REACTIONS (1)
  - Non-small cell lung cancer [Not Recovered/Not Resolved]
